FAERS Safety Report 7352884-5 (Version None)
Quarter: 2011Q1

REPORT INFORMATION
  Report Type: 
  Country: None (occurrence: None)
  Receive Date: 20110315
  Receipt Date: 20110308
  Transmission Date: 20110831
  Serious: Yes (Hospitalization)
  Sender: FDA-Public Use
  Company Number: JP-ROCHE-763267

PATIENT
  Sex: Female
  Weight: 47 kg

DRUGS (4)
  1. PREDNISOLONE [Suspect]
     Indication: RHEUMATOID ARTHRITIS
     Dosage: DOSAGE IS UNCERTAIN.
     Route: 048
     Dates: end: 20110215
  2. ACTEMRA [Suspect]
     Indication: RHEUMATOID ARTHRITIS
     Route: 041
     Dates: start: 20100427, end: 20110125
  3. GASTER [Concomitant]
     Dosage: DOSAGE IS UNCERTAIN
     Route: 048
     Dates: end: 20110215
  4. BLOPRESS [Concomitant]
     Dosage: DOSAGE IS UNCERTAIN.
     Route: 048
     Dates: end: 20100225

REACTIONS (2)
  - HEAD INJURY [None]
  - SUBARACHNOID HAEMORRHAGE [None]
